FAERS Safety Report 17757547 (Version 2)
Quarter: 2020Q2

REPORT INFORMATION
  Report Type: Spontaneous
  Country: US (occurrence: US)
  Receive Date: 20200507
  Receipt Date: 20200522
  Transmission Date: 20200714
  Serious: Yes (Other)
  Sender: FDA-Public Use
  Company Number: US-ALEMBIC PHARMACUETICALS LIMITED-2020SCAL000185

PATIENT

DRUGS (4)
  1. FLUOXETINE HYDROCHLORIDE. [Suspect]
     Active Substance: FLUOXETINE HYDROCHLORIDE
     Indication: MAJOR DEPRESSION
     Dosage: 90 MILLIGRAM PER WEEK
  2. FLUOXETINE HYDROCHLORIDE. [Suspect]
     Active Substance: FLUOXETINE HYDROCHLORIDE
     Indication: DEPRESSED MOOD
     Dosage: 180 MILLIGRAM PER WEEK (DOSE WAS INCREASED OVER SEVERAL WEEKS)
  3. FLUOXETINE HYDROCHLORIDE. [Suspect]
     Active Substance: FLUOXETINE HYDROCHLORIDE
     Indication: ANHEDONIA
     Dosage: 90 MILLIGRAM PER WEEK (DOSE WAS DECREASED OVER SEVERAL WEEKS)
  4. FLUOXETINE HYDROCHLORIDE. [Suspect]
     Active Substance: FLUOXETINE HYDROCHLORIDE
     Indication: DEPRESSION
     Dosage: 20 MILLIGRAM, OD

REACTIONS (5)
  - Dizziness [Not Recovered/Not Resolved]
  - Self-injurious ideation [Unknown]
  - Nausea [Recovered/Resolved]
  - Syncope [Unknown]
  - Pruritus [Unknown]
